FAERS Safety Report 9123960 (Version 1)
Quarter: 2013Q1

REPORT INFORMATION
  Report Type: Spontaneous
  Country: US (occurrence: US)
  Receive Date: 20130115
  Receipt Date: 20130115
  Transmission Date: 20140127
  Serious: Yes (Other)
  Sender: FDA-Public Use
  Company Number: US-PFIZER INC-2013014592

PATIENT
  Sex: Male

DRUGS (5)
  1. NEURONTIN [Suspect]
     Indication: NEURALGIA
     Dosage: 900 MG (300MG IN AFTERNOON AND 600MG AT NIGHT)
     Dates: start: 2012
  2. NEURONTIN [Suspect]
     Dosage: 600 MG, UNK
  3. NEURONTIN [Suspect]
     Dosage: 500 MG, UNK
  4. NEURONTIN [Suspect]
     Dosage: 900 MG, UNK
  5. ELAVIL [Suspect]
     Indication: CYSTITIS
     Dosage: 25 MG, UNK

REACTIONS (3)
  - Cystitis interstitial [Unknown]
  - Dyspnoea [Unknown]
  - Pain [Unknown]
